FAERS Safety Report 10614303 (Version 2)
Quarter: 2014Q4

REPORT INFORMATION
  Report Type: Spontaneous
  Country: IT (occurrence: IT)
  Receive Date: 20141128
  Receipt Date: 20141223
  Transmission Date: 20150529
  Serious: Yes (Other)
  Sender: FDA-Public Use
  Company Number: PHHY2014IT154770

PATIENT
  Sex: Male
  Weight: 2.7 kg

DRUGS (1)
  1. TASIGNA [Suspect]
     Active Substance: NILOTINIB
     Indication: PRODUCT USED FOR UNKNOWN INDICATION
     Dosage: MATERNAL DOSE: 400 MG BID
     Route: 064

REACTIONS (7)
  - Atrial septal defect [Unknown]
  - Cerebral haemorrhage [Unknown]
  - Intraventricular haemorrhage [Unknown]
  - Hypertrophic cardiomyopathy [Unknown]
  - Premature baby [Unknown]
  - Cerebral ventricle dilatation [Unknown]
  - Jaundice neonatal [Unknown]
